FAERS Safety Report 4751999-5 (Version None)
Quarter: 2005Q3

REPORT INFORMATION
  Report Type: 
  Country: None (occurrence: None)
  Receive Date: 20050824
  Receipt Date: 20050311
  Transmission Date: 20060218
  Serious: Yes (Hospitalization)
  Sender: FDA-Public Use
  Company Number: US-MERCK-0503USA02727

PATIENT
  Age: 30 Year
  Sex: Male
  Weight: 82 kg

DRUGS (3)
  1. VIOXX [Suspect]
     Indication: ARTHRALGIA
     Route: 048
     Dates: start: 19991201, end: 20040901
  2. LORTAB [Concomitant]
     Indication: ARTHRALGIA
     Route: 065
     Dates: start: 19991201, end: 20000101
  3. CORTISONE [Concomitant]
     Indication: ARTHRALGIA
     Route: 065
     Dates: start: 19991201, end: 20000101

REACTIONS (7)
  - ARTHROPATHY [None]
  - DYSPNOEA [None]
  - GASTROOESOPHAGEAL REFLUX DISEASE [None]
  - MALAISE [None]
  - MYOCARDIAL INFARCTION [None]
  - NAUSEA [None]
  - STOMACH DISCOMFORT [None]
